FAERS Safety Report 9788933 (Version 2)
Quarter: 2014Q1

REPORT INFORMATION
  Report Type: Report from Study
  Country: FR (occurrence: FR)
  Receive Date: 20131230
  Receipt Date: 20140116
  Transmission Date: 20141002
  Serious: Yes (Hospitalization)
  Sender: FDA-Public Use
  Company Number: FR-GLAXOSMITHKLINE-B0956368A

PATIENT
  Age: 76 Year
  Sex: Female
  Weight: 65 kg

DRUGS (2)
  1. PAZOPANIB [Suspect]
     Indication: GASTROINTESTINAL CANCER METASTATIC
     Dosage: 600MG PER DAY
     Dates: start: 20130924
  2. SOTALOL [Concomitant]
     Indication: ATRIAL FIBRILLATION
     Route: 048

REACTIONS (1)
  - Atrial fibrillation [Recovered/Resolved]
